FAERS Safety Report 23267243 (Version 1)
Quarter: 2023Q4

REPORT INFORMATION
  Report Type: Spontaneous
  Country: CN (occurrence: CN)
  Receive Date: 20231206
  Receipt Date: 20231206
  Transmission Date: 20240109
  Serious: Yes (Other)
  Sender: FDA-Public Use
  Company Number: CN-JNJFOC-20231182832

PATIENT
  Age: 61 Year
  Sex: Male
  Weight: 74.1 kg

DRUGS (5)
  1. DARZALEX [Suspect]
     Active Substance: DARATUMUMAB
     Indication: Plasma cell leukaemia
     Dosage: ONCE WEEKLY FOR 1-2 WEEKS
     Route: 065
     Dates: start: 20221111
  2. DARZALEX [Suspect]
     Active Substance: DARATUMUMAB
     Dosage: EVERY 2 WEEKS FOR 3-8 WEEKS
     Route: 065
  3. BORTEZOMIB [Suspect]
     Active Substance: BORTEZOMIB
     Indication: Plasma cell leukaemia
     Dosage: DAY 1, 4, 8 AND 11
     Route: 058
     Dates: start: 20221111
  4. DOXORUBICIN [Suspect]
     Active Substance: DOXORUBICIN
     Indication: Plasma cell leukaemia
     Dosage: DAY 1
     Route: 065
     Dates: start: 20221111
  5. DEXAMETHASONE [Suspect]
     Active Substance: DEXAMETHASONE
     Indication: Plasma cell leukaemia
     Dosage: D1-4 AND 9-12.
     Route: 065
     Dates: start: 20221111

REACTIONS (1)
  - Myelosuppression [Unknown]

NARRATIVE: CASE EVENT DATE: 20221111
